FAERS Safety Report 8676268 (Version 5)
Quarter: 2013Q1

REPORT INFORMATION
  Report Type: Spontaneous
  Country: US (occurrence: US)
  Receive Date: 20120720
  Receipt Date: 20130313
  Transmission Date: 20140127
  Serious: Yes (Hospitalization)
  Sender: FDA-Public Use
  Company Number: US-B.I. PHARMACEUTICALS,INC./RIDGEFIELD-2012-BP-16084BP

PATIENT
  Sex: Male
  Weight: 95.25 kg

DRUGS (7)
  1. PRADAXA [Suspect]
     Indication: ATRIAL FIBRILLATION
     Dosage: 300 MG
     Dates: start: 201101, end: 20111002
  2. GEMFIBROZIL [Concomitant]
     Dosage: 1200 MG
  3. LANOXIN [Concomitant]
     Dosage: 500 MCG
  4. GLIPIZIDE [Concomitant]
     Dosage: 5 MG
  5. ZESTRIL [Concomitant]
     Dosage: 20 MG
  6. CALAN [Concomitant]
     Dosage: 240 MG
  7. NIASPAN [Concomitant]
     Dosage: 1000 MG

REACTIONS (5)
  - Haemorrhage [Recovered/Resolved]
  - Iron deficiency anaemia [Recovered/Resolved]
  - Gastrointestinal haemorrhage [Recovered/Resolved]
  - Epistaxis [Recovered/Resolved]
  - Rectal haemorrhage [Recovered/Resolved]
